FAERS Safety Report 14666253 (Version 1)
Quarter: 2018Q1

REPORT INFORMATION
  Report Type: Spontaneous
  Country: US (occurrence: US)
  Receive Date: 20180321
  Receipt Date: 20180321
  Transmission Date: 20180509
  Serious: No
  Sender: FDA-Public Use
  Company Number: US-BIOGEN-2018BI00543981

PATIENT
  Sex: Female

DRUGS (1)
  1. TYSABRI [Suspect]
     Active Substance: NATALIZUMAB
     Indication: MULTIPLE SCLEROSIS
     Route: 065

REACTIONS (10)
  - Hyperhidrosis [Unknown]
  - Syncope [Unknown]
  - Onychoclasis [Unknown]
  - Tinea infection [Unknown]
  - Plicated tongue [Unknown]
  - Tongue haemorrhage [Unknown]
  - Onychomycosis [Unknown]
  - Vaginal infection [Unknown]
  - Swollen tongue [Unknown]
  - Erythema [Unknown]
